FAERS Safety Report 6167186-2 (Version None)
Quarter: 2009Q2

REPORT INFORMATION
  Report Type: 
  Country: None (occurrence: None)
  Receive Date: 20090424
  Receipt Date: 20090417
  Transmission Date: 20091009
  Serious: Yes (Other)
  Sender: FDA-Public Use
  Company Number: US-ASTRAZENECA-2008UW22750

PATIENT
  Age: 20907 Day
  Sex: Male
  Weight: 102.1 kg

DRUGS (13)
  1. SEROQUEL [Suspect]
     Indication: DEPRESSION
     Route: 048
     Dates: start: 20010901
  2. SEROQUEL [Suspect]
     Indication: SCHIZOPHRENIA
     Route: 048
     Dates: start: 20010901
  3. SEROQUEL [Suspect]
     Indication: BIPOLAR DISORDER
     Route: 048
     Dates: start: 20010901
  4. SEROQUEL [Suspect]
     Route: 048
     Dates: start: 19980101
  5. SEROQUEL [Suspect]
     Route: 048
     Dates: start: 19980101
  6. SEROQUEL [Suspect]
     Route: 048
     Dates: start: 19980101
  7. VYTORIN [Concomitant]
  8. LOVAZA [Concomitant]
  9. TRAMADOL HCL [Concomitant]
  10. BYETTA [Concomitant]
  11. JANUVIA [Concomitant]
  12. DIOVAN [Concomitant]
  13. PREVACID [Concomitant]

REACTIONS (5)
  - BLOOD CHOLESTEROL INCREASED [None]
  - DIABETES MELLITUS [None]
  - GAIT DISTURBANCE [None]
  - GASTROOESOPHAGEAL REFLUX DISEASE [None]
  - WEIGHT INCREASED [None]
